FAERS Safety Report 23641713 (Version 1)
Quarter: 2024Q1

REPORT INFORMATION
  Report Type: Spontaneous
  Country: GB (occurrence: GB)
  Receive Date: 20240318
  Receipt Date: 20240318
  Transmission Date: 20240410
  Serious: Yes (Other)
  Sender: FDA-Public Use
  Company Number: None

PATIENT
  Age: 54 Year
  Sex: Female
  Weight: 68 kg

DRUGS (7)
  1. ENOXAPARIN SODIUM [Suspect]
     Active Substance: ENOXAPARIN SODIUM
     Dosage: UNK
  2. CANDESARTAN [Concomitant]
     Active Substance: CANDESARTAN
     Dosage: 1 DF, QD
     Dates: start: 20230725
  3. DAPAGLIFLOZIN [Concomitant]
     Active Substance: DAPAGLIFLOZIN
     Dosage: 1 DF, QD
     Dates: start: 20230725
  4. EDOXABAN [Concomitant]
     Active Substance: EDOXABAN
     Indication: Anticoagulant therapy
     Dosage: 1 DF, QD
     Dates: start: 20240219
  5. ENSTILAR [Concomitant]
     Active Substance: BETAMETHASONE DIPROPIONATE\CALCIPOTRIENE HYDRATE
     Dosage: UNK, APPLY
     Dates: start: 20230725
  6. NEBIVOLOL [Concomitant]
     Active Substance: NEBIVOLOL
     Dosage: 3.75 MG, QD (FOR HEART)
     Dates: start: 20230725
  7. SPIRONOLACTONE [Concomitant]
     Active Substance: SPIRONOLACTONE
     Dosage: 1 DF, QD
     Dates: start: 20230725

REACTIONS (2)
  - Liver function test abnormal [Recovered/Resolved]
  - Alanine aminotransferase increased [Recovered/Resolved]
